FAERS Safety Report 5359360-X (Version None)
Quarter: 2007Q2

REPORT INFORMATION
  Report Type: 
  Country: None (occurrence: None)
  Receive Date: 20070615
  Receipt Date: 20070607
  Transmission Date: 20071010
  Serious: Yes (Hospitalization, Other)
  Sender: FDA-Public Use
  Company Number: FR-ABBOTT-07P-056-0370736-00

PATIENT
  Age: 37 Year
  Sex: Female

DRUGS (4)
  1. DEPAKENE [Suspect]
     Indication: MYOCLONIC EPILEPSY
     Route: 048
  2. PRISTINAMYCIN [Interacting]
     Indication: ABSCESS
     Route: 048
     Dates: start: 20070427, end: 20070504
  3. PRISTINAMYCIN [Interacting]
     Indication: WOUND INFECTION STAPHYLOCOCCAL
  4. GENERAL ANAESTHETIC AGENTS [Concomitant]
     Indication: GENERAL ANAESTHESIA
     Dates: start: 20070427, end: 20070427

REACTIONS (6)
  - ACCIDENT [None]
  - DISORIENTATION [None]
  - DRUG INEFFECTIVE [None]
  - DRUG INTERACTION [None]
  - GRAND MAL CONVULSION [None]
  - STAPHYLOCOCCAL ABSCESS [None]
